FAERS Safety Report 9174258 (Version 2)
Quarter: 2013Q2

REPORT INFORMATION
  Report Type: Spontaneous
  Country: US (occurrence: US)
  Receive Date: 20130320
  Receipt Date: 20130404
  Transmission Date: 20140414
  Serious: Yes (Other)
  Sender: FDA-Public Use
  Company Number: US-PFIZER INC-2013087979

PATIENT
  Age: 49 Year
  Sex: Male
  Weight: 72.56 kg

DRUGS (1)
  1. CAVERJECT [Suspect]
     Indication: ERECTILE DYSFUNCTION
     Dosage: 1.25 MG, SINGLE
     Route: 017
     Dates: start: 20111130, end: 20111130

REACTIONS (4)
  - Suicidal ideation [Unknown]
  - Blood testosterone decreased [Unknown]
  - Feeling abnormal [Unknown]
  - Sexual dysfunction [Unknown]
